FAERS Safety Report 5808249-8 (Version None)
Quarter: 2008Q3

REPORT INFORMATION
  Report Type: 
  Country: None (occurrence: None)
  Receive Date: 20080709
  Receipt Date: 20080707
  Transmission Date: 20090109
  Serious: Yes (Other)
  Sender: FDA-Public Use
  Company Number: CERZ-1000001

PATIENT
  Age: 47 Year
  Sex: Male
  Weight: 66 kg

DRUGS (1)
  1. CEREZYME [Suspect]
     Indication: GAUCHER'S DISEASE
     Dosage: 60 U/KG, QW, INTRAVENOUS
     Route: 042

REACTIONS (5)
  - DISEASE PROGRESSION [None]
  - GAUCHER'S DISEASE [None]
  - HEPATIC CIRRHOSIS [None]
  - HEPATITIS C [None]
  - HEPATOSPLENOMEGALY [None]
